FAERS Safety Report 7022281-0 (Version None)
Quarter: 2010Q3

REPORT INFORMATION
  Report Type: 
  Country: None (occurrence: None)
  Receive Date: 20100930
  Receipt Date: 20100922
  Transmission Date: 20110219
  Serious: Yes (Other)
  Sender: FDA-Public Use
  Company Number: US-BAXTER-2010BH023570

PATIENT
  Sex: Female

DRUGS (3)
  1. IFOSFAMIDE [Suspect]
     Indication: NEPHROBLASTOMA
     Dosage: DOSE UNIT:GRAMS PER METERS SQUARED
     Route: 065
  2. MESNA [Suspect]
     Indication: NEPHROBLASTOMA
     Route: 065
  3. ETOPOSIDE [Suspect]
     Indication: NEPHROBLASTOMA
     Dosage: DOSE UNIT:GRAMS PER METERS SQUARED
     Route: 065

REACTIONS (3)
  - FANCONI SYNDROME [None]
  - OSTEOMALACIA [None]
  - RICKETS [None]
